FAERS Safety Report 7903643-3 (Version None)
Quarter: 2011Q4

REPORT INFORMATION
  Report Type: 
  Country: None (occurrence: None)
  Receive Date: 20111109
  Receipt Date: 20111104
  Transmission Date: 20120403
  Serious: Yes (Death)
  Sender: FDA-Public Use
  Company Number: JP-ELI_LILLY_AND_COMPANY-JP201110007981

PATIENT
  Age: 85 Year
  Sex: Female

DRUGS (6)
  1. MILRINONE [Concomitant]
     Dosage: 0.5 GAMMA
     Route: 065
  2. DOGMATYL [Concomitant]
     Dosage: 50 MG, BID
     Route: 048
  3. DORNER [Concomitant]
     Dosage: 20 UG, TID
     Route: 048
     Dates: start: 20111021
  4. AMLODIPINE [Concomitant]
     Dosage: 2.5 MG, QD
     Route: 048
  5. ADCIRCA [Suspect]
     Indication: PULMONARY HYPERTENSION
     Dosage: 20 MG, QD
     Route: 048
     Dates: start: 20111021
  6. ALENDRONATE SODIUM [Concomitant]
     Dosage: 35 MG, QD
     Route: 048

REACTIONS (1)
  - PYELONEPHRITIS ACUTE [None]
